FAERS Safety Report 5378825-8 (Version None)
Quarter: 2007Q3

REPORT INFORMATION
  Report Type: 
  Country: None (occurrence: None)
  Receive Date: 20070705
  Receipt Date: 20070628
  Transmission Date: 20080115
  Serious: Yes (Other)
  Sender: FDA-Public Use
  Company Number: US-SANOFI-SYNTHELABO-A03200704260

PATIENT
  Age: 63 Year
  Sex: Male

DRUGS (10)
  1. AMLODIPINE [Concomitant]
     Dosage: UNK
     Route: 065
  2. NEXIUM [Concomitant]
     Dosage: UNK
     Route: 065
  3. ASPIRIN [Concomitant]
     Route: 065
  4. TOPROL-XL [Concomitant]
     Route: 065
  5. CRESTOR [Concomitant]
     Route: 065
  6. KLOR-CON [Concomitant]
     Route: 065
  7. TRICOR [Concomitant]
     Route: 065
  8. PLAVIX [Concomitant]
     Dosage: UNK
     Route: 048
  9. UROXATRAL [Suspect]
     Indication: PROSTATIC SPECIFIC ANTIGEN INCREASED
     Route: 048
     Dates: start: 20070501, end: 20070501
  10. UROXATRAL [Suspect]
     Indication: PROSTATE EXAMINATION ABNORMAL
     Route: 048
     Dates: start: 20070501, end: 20070501

REACTIONS (5)
  - FALL [None]
  - HALLUCINATION, VISUAL [None]
  - HYPOTENSION [None]
  - JOINT INJURY [None]
  - SYNCOPE [None]
